FAERS Safety Report 11734978 (Version 9)
Quarter: 2018Q1

REPORT INFORMATION
  Report Type: Report from Study
  Country: US (occurrence: US)
  Receive Date: 20151113
  Receipt Date: 20180223
  Transmission Date: 20180508
  Serious: Yes (Hospitalization)
  Sender: FDA-Public Use
  Company Number: PHHO2015US018882

PATIENT
  Age: 61 Year
  Sex: Male
  Weight: 90.7 kg

DRUGS (11)
  1. ISOSORBIDE MONONITRATE. [Concomitant]
     Active Substance: ISOSORBIDE MONONITRATE
     Indication: CORONARY ARTERY DISEASE
     Dosage: 30 MG, QD
     Route: 048
     Dates: start: 1996
  2. LISINOPRIL. [Concomitant]
     Active Substance: LISINOPRIL
     Indication: HYPERTENSION
     Dosage: 20 MG, QD
     Route: 048
     Dates: start: 2005
  3. PLAVIX [Concomitant]
     Active Substance: CLOPIDOGREL BISULFATE
     Indication: CORONARY ARTERY DISEASE
     Dosage: 25 MG, QD
     Route: 048
     Dates: start: 2013
  4. ACETYLSALICYLIC ACID [Suspect]
     Active Substance: ASPIRIN
     Dosage: 81 MG, QD
     Route: 048
     Dates: start: 201510
  5. SIMVASTATIN. [Concomitant]
     Active Substance: SIMVASTATIN
     Indication: DYSLIPIDAEMIA
     Dosage: 40 MG, QD
     Route: 048
     Dates: start: 2012
  6. METOPROLOL. [Suspect]
     Active Substance: METOPROLOL
     Indication: CORONARY ARTERY DISEASE
     Dosage: 25 MG, QD
     Route: 048
     Dates: start: 2005
  7. ILARIS [Suspect]
     Active Substance: CANAKINUMAB
     Indication: CARDIOVASCULAR EVENT PROPHYLAXIS
     Dosage: 300 MG, QUARTERLY
     Route: 058
     Dates: start: 20111228
  8. XARELTO [Suspect]
     Active Substance: RIVAROXABAN
     Dosage: 20 MG, QD
     Route: 048
     Dates: start: 20151101
  9. ACETYLSALICYLIC ACID [Suspect]
     Active Substance: ASPIRIN
     Indication: CORONARY ARTERY DISEASE
     Dosage: 325 MG, QD
     Route: 048
     Dates: start: 2000
  10. XARELTO [Suspect]
     Active Substance: RIVAROXABAN
     Indication: PULMONARY EMBOLISM
     Dosage: 20 MG, QD
     Route: 048
     Dates: start: 2015
  11. RANEXA [Concomitant]
     Active Substance: RANOLAZINE
     Indication: CORONARY ARTERY DISEASE
     Dosage: 500 MG, BID
     Route: 048
     Dates: start: 2015

REACTIONS (6)
  - Bradycardia [Recovered/Resolved]
  - Dizziness [Recovered/Resolved]
  - Presyncope [Recovered/Resolved]
  - Arteriovenous malformation [Recovered/Resolved]
  - Gastrointestinal haemorrhage [Recovered/Resolved]
  - Hypotension [Recovered/Resolved]

NARRATIVE: CASE EVENT DATE: 20151019
